FAERS Safety Report 7340545-8 (Version None)
Quarter: 2011Q1

REPORT INFORMATION
  Report Type: 
  Country: None (occurrence: None)
  Receive Date: 20110309
  Receipt Date: 20110214
  Transmission Date: 20110831
  Serious: No
  Sender: FDA-Public Use
  Company Number: US-B.I. PHARMACEUTICALS,INC./RIDGEFIELD-2011-BP-05443BP

PATIENT
  Sex: Male

DRUGS (6)
  1. ATENOLOL [Concomitant]
     Indication: CARDIAC DISORDER
  2. AMLODIPINE [Concomitant]
     Indication: CARDIAC DISORDER
  3. PLAVIX [Concomitant]
     Indication: CARDIAC DISORDER
  4. PRADAXA [Suspect]
     Indication: ATRIAL FIBRILLATION
     Dosage: 300 MG
     Route: 048
     Dates: start: 20110210, end: 20110212
  5. VYTORIN [Concomitant]
     Indication: CARDIAC DISORDER
  6. ASPIRIN [Concomitant]
     Indication: CARDIAC DISORDER

REACTIONS (2)
  - OROPHARYNGEAL PAIN [None]
  - ABDOMINAL PAIN UPPER [None]
